FAERS Safety Report 5288307-X (Version None)
Quarter: 2007Q2

REPORT INFORMATION
  Report Type: 
  Country: None (occurrence: None)
  Receive Date: 20070405
  Receipt Date: 20070321
  Transmission Date: 20071010
  Serious: Yes (Death, Other)
  Sender: FDA-Public Use
  Company Number: IE-JNJFOC-20060803433

PATIENT
  Age: 46 Year
  Sex: Male

DRUGS (4)
  1. INFLIXIMAB [Suspect]
  2. INFLIXIMAB [Suspect]
     Indication: PUSTULAR PSORIASIS
     Dosage: AT 0, 2 AND 6 WEEKS
  3. METHOTREXATE [Suspect]
     Indication: PUSTULAR PSORIASIS
     Dosage: 5-7.5MG WEEKLY
  4. FOLIC ACID [Concomitant]

REACTIONS (3)
  - ASPARTATE AMINOTRANSFERASE INCREASED [None]
  - GAMMA-GLUTAMYLTRANSFERASE INCREASED [None]
  - SUDDEN DEATH [None]
